FAERS Safety Report 9882764 (Version 2)
Quarter: 2014Q1

REPORT INFORMATION
  Report Type: Report from Study
  Country: US (occurrence: US)
  Receive Date: 20140207
  Receipt Date: 20140207
  Transmission Date: 20141002
  Serious: Yes (Other)
  Sender: FDA-Public Use
  Company Number: US-BIOMARINAP-US-2012-102479

PATIENT
  Age: 26 Year
  Sex: Male
  Weight: 59.5 kg

DRUGS (6)
  1. NAGLAZYME [Suspect]
     Indication: MUCOPOLYSACCHARIDOSIS VI
     Dosage: 1 MG/KG, QW
     Route: 041
     Dates: start: 20050818
  2. KEPPRA [Concomitant]
     Indication: PARTIAL SEIZURES
     Dosage: 1000 MG, QD
     Route: 048
     Dates: start: 20120519
  3. KEPPRA [Concomitant]
     Dosage: 500 MF, QD
  4. ZOLOFT [Concomitant]
     Indication: PRODUCT USED FOR UNKNOWN INDICATION
     Dosage: 100 MG, UNK
  5. LORATADINE [Concomitant]
     Indication: PREMEDICATION
     Dosage: 10 MG, UNK
  6. MOTRIN [Concomitant]
     Indication: PREMEDICATION
     Dosage: 400 MG, UNK

REACTIONS (1)
  - Convulsion [Recovered/Resolved]
